FAERS Safety Report 5403199-3 (Version None)
Quarter: 2007Q3

REPORT INFORMATION
  Report Type: 
  Country: None (occurrence: None)
  Receive Date: 20070801
  Receipt Date: 20070720
  Transmission Date: 20080115
  Serious: Yes (Hospitalization, Other)
  Sender: FDA-Public Use
  Company Number: US-PFIZER INC-2007061112

PATIENT
  Sex: Female
  Weight: 76.7 kg

DRUGS (2)
  1. CHANTIX [Suspect]
     Indication: EX-SMOKER
     Route: 048
  2. ZOLOFT [Concomitant]
     Indication: DEPRESSION
     Route: 048

REACTIONS (4)
  - DRUG INEFFECTIVE [None]
  - EMOTIONAL DISORDER [None]
  - SMOKER [None]
  - SURGERY [None]
